FAERS Safety Report 4325928-2 (Version None)
Quarter: 2004Q1

REPORT INFORMATION
  Report Type: 
  Country: None (occurrence: None)
  Receive Date: 20040329
  Receipt Date: 20040318
  Transmission Date: 20041129
  Serious: Yes (Hospitalization)
  Sender: FDA-Public Use
  Company Number: DK-BRISTOL-MYERS SQUIBB COMPANY-12535902

PATIENT
  Age: 53 Year
  Sex: Male
  Weight: 82 kg

DRUGS (2)
  1. CISPLATIN [Suspect]
     Indication: BLADDER CANCER
     Dates: start: 20040311, end: 20040311
  2. GEMCITABINE [Suspect]
     Indication: BLADDER CANCER
     Dates: start: 20040310, end: 20040310

REACTIONS (3)
  - DEEP VEIN THROMBOSIS [None]
  - ENTEROBACTER INFECTION [None]
  - INFECTION [None]
